FAERS Safety Report 11024494 (Version 2)
Quarter: 2015Q2

REPORT INFORMATION
  Report Type: Spontaneous
  Country: US (occurrence: US)
  Receive Date: 20150414
  Receipt Date: 20150625
  Transmission Date: 20150821
  Serious: No
  Sender: FDA-Public Use
  Company Number: US-ASTRAZENECA-2015SE25695

PATIENT
  Age: 68 Year
  Sex: Female
  Weight: 143.8 kg

DRUGS (24)
  1. LISINOPRIL. [Suspect]
     Active Substance: LISINOPRIL
     Indication: HYPERTENSION
     Route: 048
  2. LANTUS SOLOSTAR [Concomitant]
     Active Substance: INSULIN GLARGINE
     Dosage: 100 UNIT/ML
  3. ZANTAC [Concomitant]
     Active Substance: RANITIDINE HYDROCHLORIDE
  4. LANTUS [Concomitant]
     Active Substance: INSULIN GLARGINE
     Indication: TYPE 2 DIABETES MELLITUS
     Route: 058
  5. LASIX [Concomitant]
     Active Substance: FUROSEMIDE
     Route: 048
  6. MACROBID [Concomitant]
     Active Substance: NITROFURANTOIN\NITROFURANTOIN MONOHYDRATE
  7. BYDUREON [Suspect]
     Active Substance: EXENATIDE
     Indication: DIABETES MELLITUS
     Route: 058
     Dates: start: 20150326
  8. COSOPT [Concomitant]
     Active Substance: DORZOLAMIDE HYDROCHLORIDE\TIMOLOL MALEATE
     Dosage: 22.3-6.8 MG/ML
     Route: 047
  9. VITAMIN A [Concomitant]
     Active Substance: VITAMIN A
     Route: 048
  10. NOVOLOG [Concomitant]
     Active Substance: INSULIN ASPART
     Indication: TYPE 2 DIABETES MELLITUS
     Route: 058
  11. BAYER ASPIRIN [Concomitant]
     Active Substance: ASPIRIN
     Route: 048
  12. MOBIC [Concomitant]
     Active Substance: MELOXICAM
  13. DIOVAN [Concomitant]
     Active Substance: VALSARTAN
     Indication: HYPERTENSION
     Route: 048
  14. CO-ENZYME -10 [Concomitant]
  15. NEXIUM [Concomitant]
     Active Substance: ESOMEPRAZOLE MAGNESIUM
  16. PROAIR HFA [Concomitant]
     Active Substance: ALBUTEROL SULFATE
     Dosage: 108 (90 BASE)
     Route: 055
  17. CALCIUM [Concomitant]
     Active Substance: CALCIUM
     Route: 048
  18. BYDUREON [Suspect]
     Active Substance: EXENATIDE
     Indication: DIABETES MELLITUS
     Route: 058
     Dates: start: 201412, end: 201503
  19. DILTIAZEM [Concomitant]
     Active Substance: DILTIAZEM
     Indication: HYPERTENSION
     Route: 048
  20. POTASSIUM [Concomitant]
     Active Substance: POTASSIUM
     Route: 048
  21. MAGNESIUM [Concomitant]
     Active Substance: MAGNESIUM
     Route: 048
  22. K-DUR,KLOR-CON [Concomitant]
  23. RED YEAST RICE [Concomitant]
     Active Substance: DIETARY SUPPLEMENT
  24. DRISDOL [Concomitant]
     Active Substance: ERGOCALCIFEROL
     Dosage: 5000 UNITS

REACTIONS (7)
  - Weight decreased [Unknown]
  - Muscle spasms [Not Recovered/Not Resolved]
  - Decreased appetite [Unknown]
  - Abdominal discomfort [Unknown]
  - Peripheral coldness [Recovered/Resolved]
  - Constipation [Recovered/Resolved]
  - Abdominal pain upper [Unknown]

NARRATIVE: CASE EVENT DATE: 20141229
